FAERS Safety Report 9125504 (Version 1)
Quarter: 2013Q1

REPORT INFORMATION
  Report Type: Spontaneous
  Country: FR (occurrence: FR)
  Receive Date: 20130121
  Receipt Date: 20130121
  Transmission Date: 20140127
  Serious: Yes (Other)
  Sender: FDA-Public Use
  Company Number: FR-SANOFI-AVENTIS-2013SA003467

PATIENT
  Age: 71 Year
  Sex: Female

DRUGS (9)
  1. ARAVA [Suspect]
     Indication: PSORIATIC ARTHROPATHY
     Route: 048
     Dates: start: 200602
  2. HUMIRA [Suspect]
     Indication: PRODUCT USED FOR UNKNOWN INDICATION
     Dosage: EVERY 15 DAYS
     Route: 042
     Dates: start: 200907
  3. ACTONEL [Concomitant]
     Route: 048
  4. UVEDOSE [Concomitant]
     Dosage: EVERY THREE MONTHS
     Route: 048
  5. DOLIPRANE [Concomitant]
  6. LEVOTHYROX [Concomitant]
  7. TRIMETAZIDINE HYDROCHLORIDE [Concomitant]
  8. SPAGULAX [Concomitant]
  9. MULTIVITAMIN AND MINERAL SUPPLEMENT [Concomitant]

REACTIONS (2)
  - Colon cancer [Not Recovered/Not Resolved]
  - Large intestine polyp [Recovered/Resolved]
